FAERS Safety Report 4645466-7 (Version None)
Quarter: 2005Q2

REPORT INFORMATION
  Report Type: 
  Country: None (occurrence: None)
  Receive Date: 20050426
  Receipt Date: 20050228
  Transmission Date: 20051028
  Serious: Yes (Hospitalization)
  Sender: FDA-Public Use
  Company Number: US-MERCK-0503USA00138

PATIENT
  Age: 51 Year
  Sex: Female

DRUGS (3)
  1. ZOCOR [Suspect]
     Indication: DYSLIPIDAEMIA
     Route: 048
     Dates: start: 20040816, end: 20040901
  2. HYZAAR [Concomitant]
     Route: 065
     Dates: start: 20040801
  3. PREVACID [Concomitant]
     Route: 065
     Dates: start: 20040801

REACTIONS (3)
  - BALANCE DISORDER [None]
  - STOMACH DISCOMFORT [None]
  - TINNITUS [None]
